FAERS Safety Report 8248813-2 (Version None)
Quarter: 2012Q2

REPORT INFORMATION
  Report Type: 
  Country: None (occurrence: None)
  Receive Date: 20120401
  Receipt Date: 20120323
  Transmission Date: 20120825
  Serious: Yes (Other)
  Sender: FDA-Public Use
  Company Number: PHHY2012FR027114

PATIENT
  Age: 38 Year
  Sex: Female

DRUGS (3)
  1. MYCOPHENOLATE MOFETIL [Suspect]
  2. PREDNISONE [Suspect]
  3. TACROLIMUS [Suspect]

REACTIONS (3)
  - MOLLUSCUM CONTAGIOSUM [None]
  - RENAL IMPAIRMENT [None]
  - HERPES VIRUS INFECTION [None]
